FAERS Safety Report 13896459 (Version 1)
Quarter: 2017Q3

REPORT INFORMATION
  Report Type: Spontaneous
  Country: US (occurrence: US)
  Receive Date: 20170823
  Receipt Date: 20170823
  Transmission Date: 20171127
  Serious: No
  Sender: FDA-Public Use
  Company Number: US-BRISTOL-MYERS SQUIBB COMPANY-BMS-2016-113950

PATIENT
  Sex: Male
  Weight: 112.2 kg

DRUGS (1)
  1. HYDREA [Suspect]
     Active Substance: HYDROXYUREA
     Indication: BONE MARROW TRANSPLANT
     Route: 065

REACTIONS (1)
  - Product use in unapproved indication [Unknown]
